FAERS Safety Report 22367613 (Version 9)
Quarter: 2025Q1

REPORT INFORMATION
  Report Type: Report from Study
  Country: US (occurrence: US)
  Receive Date: 20230525
  Receipt Date: 20250307
  Transmission Date: 20250409
  Serious: Yes (Hospitalization, Other)
  Sender: TAKEDA
  Company Number: US-TAKEDA-2023TUS051344

PATIENT
  Sex: Male
  Weight: 91 kg

DRUGS (36)
  1. HUMAN IMMUNOGLOBULIN G [Suspect]
     Active Substance: HUMAN IMMUNOGLOBULIN G
     Indication: Immunodeficiency common variable
     Dosage: 10 GRAM, 1/WEEK
     Dates: start: 20230118
  2. HUMAN IMMUNOGLOBULIN G [Suspect]
     Active Substance: HUMAN IMMUNOGLOBULIN G
     Dosage: 8 GRAM, 1/WEEK
  3. TIROSINT [Concomitant]
     Active Substance: LEVOTHYROXINE SODIUM
  4. METHOCARBAMOL [Concomitant]
     Active Substance: METHOCARBAMOL
  5. Omega [Concomitant]
  6. CANDESARTAN CILEXETIL [Concomitant]
     Active Substance: CANDESARTAN CILEXETIL
  7. TESTOSTERONE CYPIONATE [Concomitant]
     Active Substance: TESTOSTERONE CYPIONATE
  8. ATENOLOL [Concomitant]
     Active Substance: ATENOLOL
  9. PRASTERONE [Concomitant]
     Active Substance: PRASTERONE
  10. BUPROPION HYDROCHLORIDE [Concomitant]
     Active Substance: BUPROPION HYDROCHLORIDE
  11. DOXYCYCLINE HYCLATE [Concomitant]
     Active Substance: DOXYCYCLINE HYCLATE
  12. Coq [Concomitant]
  13. HERBALS\TURMERIC [Concomitant]
     Active Substance: HERBALS\TURMERIC
  14. PRAZOSIN HYDROCHLORIDE [Concomitant]
     Active Substance: PRAZOSIN HYDROCHLORIDE
  15. FORTEO [Concomitant]
     Active Substance: TERIPARATIDE
  16. VIIBRYD [Concomitant]
     Active Substance: VILAZODONE HYDROCHLORIDE
  17. CLONAZEPAM [Concomitant]
     Active Substance: CLONAZEPAM
  18. SUBOXONE [Concomitant]
     Active Substance: BUPRENORPHINE HYDROCHLORIDE\NALOXONE HYDROCHLORIDE
  19. LIOTHYRONINE SODIUM [Concomitant]
     Active Substance: LIOTHYRONINE SODIUM
  20. VITAMIN D3 [Concomitant]
     Active Substance: CHOLECALCIFEROL
  21. LAMOTRIGINE [Concomitant]
     Active Substance: LAMOTRIGINE
  22. SYMBICORT [Concomitant]
     Active Substance: BUDESONIDE\FORMOTEROL FUMARATE DIHYDRATE
  23. Citracal + D3 [Concomitant]
  24. ACETAMINOPHEN [Concomitant]
     Active Substance: ACETAMINOPHEN
  25. DIPHENHYDRAMINE [Concomitant]
     Active Substance: DIPHENHYDRAMINE
  26. EPINEPHRINE [Concomitant]
     Active Substance: EPINEPHRINE
  27. Lmx [Concomitant]
  28. ALBUTEROL [Concomitant]
     Active Substance: ALBUTEROL
  29. CANDESARTAN [Concomitant]
     Active Substance: CANDESARTAN
  30. ALBUTEROL SULFATE [Concomitant]
     Active Substance: ALBUTEROL SULFATE
  31. TESTOSTERONE [Concomitant]
     Active Substance: TESTOSTERONE
  32. BUPROPION [Concomitant]
     Active Substance: BUPROPION
  33. PRAZOSIN [Concomitant]
     Active Substance: PRAZOSIN
  34. FISH OIL [Concomitant]
     Active Substance: FISH OIL
  35. LIOTHYRONINE [Concomitant]
     Active Substance: LIOTHYRONINE
  36. ALBUTEROL SULFATE [Concomitant]
     Active Substance: ALBUTEROL SULFATE

REACTIONS (11)
  - Epididymitis [Unknown]
  - Scrotal infection [Unknown]
  - Renal disorder [Unknown]
  - Blood pressure fluctuation [Unknown]
  - Post procedural swelling [Not Recovered/Not Resolved]
  - Blood pressure decreased [Unknown]
  - Localised infection [Unknown]
  - Weight fluctuation [Unknown]
  - Thyroid disorder [Unknown]
  - Weight decreased [Unknown]
  - Urticaria [Unknown]
